FAERS Safety Report 6526962-4 (Version None)
Quarter: 2010Q1

REPORT INFORMATION
  Report Type: 
  Country: None (occurrence: None)
  Receive Date: 20100105
  Receipt Date: 20091228
  Transmission Date: 20100710
  Serious: Yes (Other)
  Sender: FDA-Public Use
  Company Number: ES-ASTRAZENECA-2009SE33974

PATIENT
  Age: 62 Year
  Sex: Male

DRUGS (3)
  1. PULMICORT [Suspect]
     Indication: ASTHMA
     Route: 055
     Dates: start: 20081127, end: 20081231
  2. TERBASMIN TURBUHALER [Suspect]
     Indication: ASTHMA
     Dosage: 500 UG POWDER FOR INHALATION, 1 X 200 DOSES
     Route: 055
  3. LEXATIN [Concomitant]
     Route: 048

REACTIONS (1)
  - PALPITATIONS [None]
